FAERS Safety Report 6303924-3 (Version None)
Quarter: 2009Q3

REPORT INFORMATION
  Report Type: 
  Country: None (occurrence: None)
  Receive Date: 20090810
  Receipt Date: 20090810
  Transmission Date: 20100115
  Serious: Yes (Life-Threatening, Hospitalization, Other)
  Sender: FDA-Public Use
  Company Number: None

PATIENT
  Age: 48 Year
  Sex: Female
  Weight: 54.4316 kg

DRUGS (2)
  1. DEPO-MEDROL [Suspect]
     Indication: MYOSITIS
     Dosage: 20 MG
     Dates: start: 20090603
  2. BUPIVACAINE [Suspect]
     Indication: MYOSITIS
     Dosage: 8CC OF 0.25
     Dates: start: 20090608

REACTIONS (3)
  - ABNORMAL BEHAVIOUR [None]
  - BLOOD POTASSIUM DECREASED [None]
  - MEMORY IMPAIRMENT [None]
